FAERS Safety Report 6182939-2 (Version None)
Quarter: 2009Q2

REPORT INFORMATION
  Report Type: 
  Country: None (occurrence: None)
  Receive Date: 20090507
  Receipt Date: 20090504
  Transmission Date: 20091009
  Serious: Yes (Hospitalization)
  Sender: FDA-Public Use
  Company Number: FR-ASTRAZENECA-2009CG00855

PATIENT
  Age: 15 Year
  Sex: Male

DRUGS (4)
  1. FOSCAVIR [Suspect]
     Route: 042
     Dates: start: 20090219, end: 20090309
  2. CYMEVAN [Suspect]
     Route: 042
     Dates: start: 20090213, end: 20090218
  3. FORTUM [Suspect]
     Route: 042
     Dates: start: 20090219, end: 20090302
  4. TARGOCID [Suspect]
     Route: 042
     Dates: start: 20090219, end: 20090302

REACTIONS (1)
  - PYRAMIDAL TRACT SYNDROME [None]
